FAERS Safety Report 5416299-9 (Version None)
Quarter: 2007Q3

REPORT INFORMATION
  Report Type: 
  Country: None (occurrence: None)
  Receive Date: 20070718
  Receipt Date: 20060830
  Transmission Date: 20080115
  Serious: Yes (Hospitalization, Other)
  Sender: FDA-Public Use
  Company Number: 2006014103

PATIENT
  Age: 76 Year
  Sex: Male

DRUGS (5)
  1. CELEBREX [Suspect]
     Indication: ILL-DEFINED DISORDER
     Dates: start: 20010101
  2. VIOXX [Suspect]
     Indication: ILL-DEFINED DISORDER
     Dates: start: 20010101
  3. CARBIDOPA (CARBIDOPA) [Concomitant]
  4. PREVACID [Concomitant]
  5. LASIX [Concomitant]

REACTIONS (1)
  - MYOCARDIAL INFARCTION [None]
